FAERS Safety Report 25002177 (Version 4)
Quarter: 2025Q2

REPORT INFORMATION
  Report Type: Spontaneous
  Country: US (occurrence: US)
  Receive Date: 20250224
  Receipt Date: 20250415
  Transmission Date: 20250717
  Serious: No
  Sender: SANOFI AVENTIS
  Company Number: US-SA-2025SA053572

PATIENT
  Age: 63 Year
  Sex: Female
  Weight: 68.18 kg

DRUGS (1)
  1. AUBAGIO [Suspect]
     Active Substance: TERIFLUNOMIDE
     Indication: Multiple sclerosis
     Dosage: 14 MG, QD
     Dates: start: 20240401

REACTIONS (6)
  - Oedema peripheral [Unknown]
  - Osteopenia [Unknown]
  - Arthritis [Unknown]
  - Swelling [Unknown]
  - Bronchitis [Recovering/Resolving]
  - Pain in extremity [Unknown]

NARRATIVE: CASE EVENT DATE: 20250221
